FAERS Safety Report 9099587 (Version 1)
Quarter: 2013Q1

REPORT INFORMATION
  Report Type: Spontaneous
  Country: US (occurrence: US)
  Receive Date: 20130214
  Receipt Date: 20130214
  Transmission Date: 20140127
  Serious: No
  Sender: FDA-Public Use
  Company Number: US-ASTRAZENECA-2013SE08790

PATIENT
  Age: 72 Year
  Sex: Female
  Weight: 81.2 kg

DRUGS (15)
  1. PRILOSEC [Suspect]
     Indication: GASTROOESOPHAGEAL REFLUX DISEASE
     Route: 048
     Dates: start: 20121210, end: 20130205
  2. PRILOSEC [Suspect]
     Indication: ABDOMINAL PAIN UPPER
     Route: 048
     Dates: start: 20121210, end: 20130205
  3. SIMVASTATIN [Concomitant]
     Indication: BLOOD CHOLESTEROL
  4. SPIRONOLACTONE [Concomitant]
     Indication: BLOOD PRESSURE
  5. BENICAR [Concomitant]
     Indication: BLOOD PRESSURE
  6. AMLODIPINE [Concomitant]
     Indication: BLOOD PRESSURE
  7. SERTRALINE ZOLOFT [Concomitant]
     Indication: DEPRESSION
  8. ACIDOPHILUS [Concomitant]
     Indication: PROPHYLAXIS
  9. OSCAL CALCIUM AND VITAMIN D3 [Concomitant]
     Indication: PROPHYLAXIS
  10. THERA TEARS [Concomitant]
     Indication: DRY EYE
  11. LEVOTHYROXINE [Concomitant]
     Indication: THYROID DISORDER
  12. SINGULAIR [Concomitant]
     Indication: ASTHMA
  13. AMBIEN [Concomitant]
     Indication: SLEEP DISORDER
  14. MELATONIN [Concomitant]
     Indication: SLEEP DISORDER
  15. ANTIBIOTICS UNKNOWN [Concomitant]
     Indication: PULMONARY CONGESTION

REACTIONS (3)
  - Fatigue [Unknown]
  - Urticaria [Unknown]
  - Intentional drug misuse [Recovered/Resolved]
